FAERS Safety Report 21498564 (Version 4)
Quarter: 2023Q1

REPORT INFORMATION
  Report Type: Report from Study
  Country: CA (occurrence: CA)
  Receive Date: 20221024
  Receipt Date: 20230112
  Transmission Date: 20230417
  Serious: Yes (Hospitalization, Other)
  Sender: FDA-Public Use
  Company Number: CA-GLAXOSMITHKLINE-CA2022145625

PATIENT

DRUGS (1)
  1. MEPOLIZUMAB [Suspect]
     Active Substance: MEPOLIZUMAB
     Indication: Asthma
     Dosage: 100 MG, Z EVERY 4 WEEKS
     Route: 058
     Dates: start: 20191004

REACTIONS (14)
  - Hiatus hernia [Unknown]
  - Asthenia [Not Recovered/Not Resolved]
  - Feeding disorder [Unknown]
  - Pain [Recovered/Resolved]
  - Injury [Unknown]
  - Gastric disorder [Unknown]
  - Lung disorder [Unknown]
  - Cataract [Unknown]
  - Vomiting [Unknown]
  - Illness [Unknown]
  - Discoloured vomit [Unknown]
  - Oesophageal disorder [Unknown]
  - Product dose omission issue [Unknown]
  - Inappropriate schedule of product administration [Unknown]

NARRATIVE: CASE EVENT DATE: 20221123
